FAERS Safety Report 6418587-6 (Version None)
Quarter: 2009Q4

REPORT INFORMATION
  Report Type: 
  Country: None (occurrence: None)
  Receive Date: 20091028
  Receipt Date: 20091015
  Transmission Date: 20100525
  Serious: Yes (Other)
  Sender: FDA-Public Use
  Company Number: PHHY2009AU44535

PATIENT
  Sex: Female

DRUGS (2)
  1. GLEEVEC [Suspect]
     Indication: CHRONIC MYELOID LEUKAEMIA
     Dosage: 600 MG, UNK
     Route: 048
     Dates: start: 20070101
  2. GLEEVEC [Suspect]
     Dosage: 400 MG, UNK
     Route: 048

REACTIONS (9)
  - EYE OEDEMA [None]
  - FACE OEDEMA [None]
  - FATIGUE [None]
  - HERPES ZOSTER [None]
  - NAUSEA [None]
  - RASH [None]
  - SKIN HYPOPIGMENTATION [None]
  - SKIN LESION [None]
  - URTICARIA [None]
